FAERS Safety Report 7767362-9 (Version None)
Quarter: 2011Q3

REPORT INFORMATION
  Report Type: 
  Country: None (occurrence: None)
  Receive Date: 20110922
  Receipt Date: 20100830
  Transmission Date: 20111222
  Serious: Yes (Other)
  Sender: FDA-Public Use
  Company Number: US-ASTRAZENECA-2007UW09774

PATIENT
  Age: 48 Year
  Sex: Female
  Weight: 64 kg

DRUGS (30)
  1. SEROQUEL [Suspect]
     Indication: ANXIETY
     Route: 048
     Dates: start: 20000101, end: 20060101
  2. SEROQUEL [Suspect]
     Indication: DEPRESSION
     Route: 048
     Dates: start: 20000101, end: 20060101
  3. SEROQUEL [Suspect]
     Indication: BIPOLAR DISORDER
     Route: 048
     Dates: start: 20000101, end: 20060101
  4. SEROQUEL [Suspect]
     Route: 048
     Dates: start: 20030501, end: 20040101
  5. HYDROCHLOROTHIAZIDE [Concomitant]
     Indication: BLOOD PRESSURE DECREASED
     Route: 048
     Dates: start: 20031110
  6. VICODIN [Concomitant]
     Dates: start: 20031110
  7. SEROQUEL [Suspect]
     Route: 048
     Dates: start: 20050101, end: 20050901
  8. ELAVIL [Concomitant]
     Route: 048
     Dates: start: 20030505
  9. SEROQUEL [Suspect]
     Indication: REACTIVE PSYCHOSIS
     Route: 048
     Dates: start: 20000101, end: 20060101
  10. SEROQUEL [Suspect]
     Route: 048
     Dates: start: 20020201, end: 20040101
  11. SEROQUEL [Suspect]
     Route: 048
     Dates: start: 20020215
  12. SEROQUEL [Suspect]
     Route: 048
     Dates: start: 20020215
  13. ASACOL [Concomitant]
     Indication: CROHN'S DISEASE
     Route: 048
     Dates: start: 20020409
  14. SEROQUEL [Suspect]
     Route: 048
     Dates: start: 20050101, end: 20050901
  15. SEROQUEL [Suspect]
     Route: 048
     Dates: start: 20020201, end: 20040101
  16. SEROQUEL [Suspect]
     Route: 048
     Dates: start: 20020201, end: 20040101
  17. SEROQUEL [Suspect]
     Route: 048
     Dates: start: 20020215
  18. SEROQUEL [Suspect]
     Route: 048
     Dates: start: 20050101, end: 20050901
  19. VASOTEC [Concomitant]
     Indication: ESSENTIAL HYPERTENSION
  20. LASIX [Concomitant]
     Dates: start: 20030909
  21. ASPIRIN [Concomitant]
     Dates: start: 20030909
  22. SEROQUEL [Suspect]
     Route: 048
     Dates: start: 20020201, end: 20040101
  23. SEROQUEL [Suspect]
     Route: 048
     Dates: start: 20020215
  24. SEROQUEL [Suspect]
     Route: 048
     Dates: start: 20030501, end: 20040101
  25. SEROQUEL [Suspect]
     Route: 048
     Dates: start: 20030501, end: 20040101
  26. SEROQUEL [Suspect]
     Route: 048
     Dates: start: 20050101, end: 20050901
  27. ZESTRIL [Concomitant]
     Dates: start: 20030909
  28. SEROQUEL [Suspect]
     Route: 048
     Dates: start: 20030501, end: 20040101
  29. PROTONIX [Concomitant]
     Dates: start: 20030909
  30. ATIVAN [Concomitant]
     Indication: FEELING OF RELAXATION
     Dates: start: 20030909

REACTIONS (6)
  - TYPE 2 DIABETES MELLITUS [None]
  - OBESITY [None]
  - DIABETIC COMA [None]
  - DIABETES MELLITUS [None]
  - WEIGHT INCREASED [None]
  - DIABETIC COMPLICATION [None]
